FAERS Safety Report 7345331-0 (Version None)
Quarter: 2011Q1

REPORT INFORMATION
  Report Type: 
  Country: None (occurrence: None)
  Receive Date: 20110310
  Receipt Date: 20110211
  Transmission Date: 20110831
  Serious: No
  Sender: FDA-Public Use
  Company Number: US-B.I. PHARMACEUTICALS,INC./RIDGEFIELD-2010-BP-15135BP

PATIENT
  Sex: Male

DRUGS (7)
  1. PRADAXA [Suspect]
     Indication: ATRIAL FIBRILLATION
     Dosage: 300 MG
     Route: 048
     Dates: start: 20101206, end: 20101213
  2. GLUCOPHAGE [Concomitant]
     Indication: DIABETES MELLITUS
     Route: 048
  3. AMARYL [Concomitant]
     Indication: DIABETES MELLITUS
     Route: 048
  4. BENZONATATE [Concomitant]
     Indication: COUGH
     Route: 048
  5. ACTOS [Concomitant]
     Indication: DIABETES MELLITUS
     Route: 048
  6. DIOVAN [Concomitant]
     Indication: HYPERTENSION
     Route: 048
  7. PRADAXA [Suspect]
     Indication: HEART RATE IRREGULAR

REACTIONS (7)
  - HYPOTENSION [None]
  - RECTAL HAEMORRHAGE [None]
  - HEART RATE DECREASED [None]
  - RASH [None]
  - FATIGUE [None]
  - DIARRHOEA [None]
  - ASTHENIA [None]
